FAERS Safety Report 16230853 (Version 9)
Quarter: 2021Q1

REPORT INFORMATION
  Report Type: Report from Study
  Country: AR (occurrence: AR)
  Receive Date: 20190423
  Receipt Date: 20210309
  Transmission Date: 20210419
  Serious: Yes (Hospitalization, Other)
  Sender: FDA-Public Use
  Company Number: PHHY2019AR082234

PATIENT
  Age: 38 Year
  Sex: Female

DRUGS (3)
  1. GILENYA [Suspect]
     Active Substance: FINGOLIMOD HYDROCHLORIDE
     Dosage: 0.5 MG, QD
     Route: 065
     Dates: start: 2014
  2. GILENYA [Suspect]
     Active Substance: FINGOLIMOD HYDROCHLORIDE
     Indication: MULTIPLE SCLEROSIS
     Dosage: 0.5 MG, QD
     Route: 065
     Dates: start: 20131118
  3. VALIUM [Concomitant]
     Active Substance: DIAZEPAM
     Indication: SLEEP DISORDER
     Dosage: 5 MG, QD
     Route: 065

REACTIONS (26)
  - Blindness [Recovered/Resolved]
  - Facial paralysis [Not Recovered/Not Resolved]
  - Formication [Unknown]
  - Visual impairment [Recovering/Resolving]
  - Nervousness [Not Recovered/Not Resolved]
  - Syncope [Not Recovered/Not Resolved]
  - Malaise [Recovering/Resolving]
  - Hypersensitivity [Unknown]
  - Monoplegia [Recovered/Resolved]
  - Limb discomfort [Unknown]
  - Disease recurrence [Unknown]
  - Headache [Not Recovered/Not Resolved]
  - Heart rate decreased [Not Recovered/Not Resolved]
  - Stress [Not Recovered/Not Resolved]
  - Loss of consciousness [Not Recovered/Not Resolved]
  - Hypoaesthesia [Not Recovered/Not Resolved]
  - Musculoskeletal stiffness [Not Recovered/Not Resolved]
  - Pain in extremity [Recovering/Resolving]
  - Gait disturbance [Not Recovered/Not Resolved]
  - Dizziness [Recovering/Resolving]
  - Influenza [Not Recovered/Not Resolved]
  - Urinary tract infection [Unknown]
  - Drug ineffective [Unknown]
  - Palpitations [Unknown]
  - Stress [Not Recovered/Not Resolved]
  - Asthenia [Recovering/Resolving]

NARRATIVE: CASE EVENT DATE: 201810
